FAERS Safety Report 8166612-7 (Version None)
Quarter: 2012Q1

REPORT INFORMATION
  Report Type: 
  Country: None (occurrence: None)
  Receive Date: 20120227
  Receipt Date: 20120222
  Transmission Date: 20120608
  Serious: Yes (Other)
  Sender: FDA-Public Use
  Company Number: BE-BAYER-2012-015094

PATIENT
  Sex: Male

DRUGS (6)
  1. ASPIRIN [Concomitant]
     Indication: CEREBROVASCULAR ACCIDENT
     Dosage: 80 MG, UNK
  2. NEXAVAR [Suspect]
     Indication: HEPATIC NEOPLASM MALIGNANT
     Dosage: UNK
     Dates: start: 20120101
  3. NOBITEN [Concomitant]
     Dosage: 1 DF, QD
  4. ATACAND HCT [Concomitant]
     Dosage: 1 DF, QD
  5. METFORMIN HCL [Concomitant]
     Dosage: 850 MG, TID
  6. ONGLYZA [Concomitant]
     Dosage: 5 MG, QD

REACTIONS (2)
  - APHASIA [None]
  - CEREBROVASCULAR ACCIDENT [None]
